FAERS Safety Report 15742111 (Version 1)
Quarter: 2018Q4

REPORT INFORMATION
  Report Type: Spontaneous
  Country: US (occurrence: US)
  Receive Date: 20181219
  Receipt Date: 20181219
  Transmission Date: 20190205
  Serious: Yes (Disabling, Other)
  Sender: FDA-Public Use
  Company Number: None

PATIENT
  Age: 76 Year
  Sex: Male
  Weight: 81 kg

DRUGS (12)
  1. NIACIN. [Concomitant]
     Active Substance: NIACIN
  2. FLAXSEED [Concomitant]
     Active Substance: FLAX SEED
  3. AMLODIPINE BESYLATE. [Concomitant]
     Active Substance: AMLODIPINE BESYLATE
  4. VALSARTAN. [Concomitant]
     Active Substance: VALSARTAN
  5. ASPIRIN. [Concomitant]
     Active Substance: ASPIRIN
  6. ATENOLOL. [Concomitant]
     Active Substance: ATENOLOL
  7. CELECOXIB. [Concomitant]
     Active Substance: CELECOXIB
  8. MULTIVITAMIN [Concomitant]
     Active Substance: VITAMINS
  9. CLEAR LAX [Concomitant]
     Active Substance: POLYETHYLENE GLYCOL 3350
  10. PRALUENT [Suspect]
     Active Substance: ALIROCUMAB
     Indication: BLOOD CHOLESTEROL INCREASED
     Dosage: ?          QUANTITY:1 INJECTION(S);OTHER FREQUENCY:EVERY 2 WKS;?
     Route: 058
     Dates: start: 20180406, end: 20181212
  11. FISH OIL/OMEGA [Concomitant]
  12. VITAMIN E [Concomitant]
     Active Substance: .ALPHA.-TOCOPHEROL

REACTIONS (3)
  - Amnesia [None]
  - Fatigue [None]
  - Muscle spasms [None]

NARRATIVE: CASE EVENT DATE: 20180701
